FAERS Safety Report 7942268-0 (Version None)
Quarter: 2011Q4

REPORT INFORMATION
  Report Type: 
  Country: None (occurrence: None)
  Receive Date: 20111128
  Receipt Date: 20111028
  Transmission Date: 20120403
  Serious: No
  Sender: FDA-Public Use
  Company Number: US-ABBOTT-11P-163-0870220-00

PATIENT
  Sex: Male

DRUGS (4)
  1. FORTEO [Concomitant]
     Indication: PRODUCT USED FOR UNKNOWN INDICATION
  2. METHADONE HYDROCHLORIDE [Concomitant]
     Indication: PRODUCT USED FOR UNKNOWN INDICATION
  3. TESTOSTERONE [Concomitant]
     Indication: BLOOD TESTOSTERONE DECREASED
     Dosage: 1% PACKETS
     Route: 061
  4. ANDROGEL [Suspect]
     Indication: BLOOD TESTOSTERONE DECREASED
     Route: 061
     Dates: start: 20110801

REACTIONS (5)
  - ERYTHEMA [None]
  - PAIN IN EXTREMITY [None]
  - BONE PAIN [None]
  - OEDEMA PERIPHERAL [None]
  - BURNING SENSATION [None]
